FAERS Safety Report 7934000-1 (Version None)
Quarter: 2011Q4

REPORT INFORMATION
  Report Type: 
  Country: None (occurrence: None)
  Receive Date: 20111122
  Receipt Date: 20111110
  Transmission Date: 20120403
  Serious: Yes (Other)
  Sender: FDA-Public Use
  Company Number: MX-ELI_LILLY_AND_COMPANY-MX201110004857

PATIENT
  Age: 16 Year
  Sex: Female
  Weight: 62 kg

DRUGS (1)
  1. PROZAC [Suspect]
     Indication: DEPRESSION
     Dosage: 20 MG, QD
     Route: 048
     Dates: start: 20110902

REACTIONS (8)
  - HEADACHE [None]
  - CONDITION AGGRAVATED [None]
  - LOSS OF CONSCIOUSNESS [None]
  - DIZZINESS [None]
  - DEAFNESS [None]
  - FALL [None]
  - LIMB INJURY [None]
  - BLINDNESS [None]
